FAERS Safety Report 19239937 (Version 3)
Quarter: 2021Q3

REPORT INFORMATION
  Report Type: Spontaneous
  Country: RU (occurrence: RU)
  Receive Date: 20210511
  Receipt Date: 20210714
  Transmission Date: 20211014
  Serious: Yes (Hospitalization, Other)
  Sender: FDA-Public Use
  Company Number: RU-BIOGEN-2021BI01009256

PATIENT
  Age: 25 Year
  Sex: Male
  Weight: 99 kg

DRUGS (1)
  1. TYSABRI [Suspect]
     Active Substance: NATALIZUMAB
     Indication: MULTIPLE SCLEROSIS
     Route: 065
     Dates: start: 20210212

REACTIONS (1)
  - Meningoencephalitis herpetic [Unknown]

NARRATIVE: CASE EVENT DATE: 20210312
